FAERS Safety Report 4406329-5 (Version None)
Quarter: 2004Q3

REPORT INFORMATION
  Report Type: 
  Country: None (occurrence: None)
  Receive Date: 20040723
  Receipt Date: 20030623
  Transmission Date: 20050211
  Serious: No
  Sender: FDA-Public Use
  Company Number: US-GLAXOSMITHKLINE-A0413560A

PATIENT
  Age: 72 Year
  Sex: Female
  Weight: 103.6 kg

DRUGS (4)
  1. AVANDIA [Suspect]
     Dosage: 8MG PER DAY
     Route: 048
     Dates: start: 20030501, end: 20030601
  2. AMARYL [Concomitant]
     Route: 048
  3. HYDROCHLOROTHIAZIDE [Concomitant]
     Route: 048
  4. ZETIA [Concomitant]
     Dosage: 10MG PER DAY
     Route: 048
     Dates: start: 20021201

REACTIONS (1)
  - FLUID RETENTION [None]
